FAERS Safety Report 6411865-6 (Version None)
Quarter: 2009Q4

REPORT INFORMATION
  Report Type: 
  Country: None (occurrence: None)
  Receive Date: 20091020
  Receipt Date: 20091007
  Transmission Date: 20100525
  Serious: Yes (Hospitalization, Disabling)
  Sender: FDA-Public Use
  Company Number: 2009AC000058

PATIENT
  Age: 48 Year
  Sex: Male
  Weight: 206.8402 kg

DRUGS (40)
  1. DIGOXIN [Suspect]
     Dosage: 0.25 MG; QD; PO
     Route: 048
     Dates: start: 20000401, end: 20090226
  2. BYETTA [Concomitant]
  3. NOVOFINE [Concomitant]
  4. METOPROLOL TARTRATE [Concomitant]
  5. OXYCODONE [Concomitant]
  6. ALLOPURINOL [Concomitant]
  7. VYTORIN [Concomitant]
  8. ULTRAM [Concomitant]
  9. ZYLOPRIM [Concomitant]
  10. PRAVASTATIN [Concomitant]
  11. PRANDIN [Concomitant]
  12. WARFARIN SODIUM [Concomitant]
  13. AZITHROMYCIN [Concomitant]
  14. MUCINEX [Concomitant]
  15. COLCHICINE [Concomitant]
  16. TRAMADOL [Concomitant]
  17. ALBUTEROL [Concomitant]
  18. CELEBREX [Concomitant]
  19. CIPROFLOXACIN [Concomitant]
  20. METFORMIN HCL [Concomitant]
  21. COREG [Concomitant]
  22. FOSINOPRIL SODIUM [Concomitant]
  23. FUROSEMIDE [Concomitant]
  24. ISOSORBIDE [Concomitant]
  25. METOLAZONE [Concomitant]
  26. SPIRONOLACTONE [Concomitant]
  27. KLOR-CON [Concomitant]
  28. TOPROL-XL [Concomitant]
  29. NITROGLYCERIN [Concomitant]
  30. TORSEMIDE [Concomitant]
  31. SORBITOL [Concomitant]
  32. ASPIRIN [Concomitant]
  33. FLONASE [Concomitant]
  34. THEOPHYLLINE [Concomitant]
  35. ASPIRIN [Concomitant]
  36. AVANDIA [Concomitant]
  37. MONOPRIL [Concomitant]
  38. GLUCOPHAGE [Concomitant]
  39. PRILOSEC [Concomitant]
  40. SORBITOL [Concomitant]

REACTIONS (40)
  - ABDOMINAL DISCOMFORT [None]
  - ACROCHORDON [None]
  - APPETITE DISORDER [None]
  - ARTHRALGIA [None]
  - ATRIAL FIBRILLATION [None]
  - BLOOD CREATININE INCREASED [None]
  - BLOOD GLUCOSE INCREASED [None]
  - BLOOD UREA INCREASED [None]
  - CARDIAC FAILURE CONGESTIVE [None]
  - CARDIOACTIVE DRUG LEVEL INCREASED [None]
  - DECREASED APPETITE [None]
  - DEHYDRATION [None]
  - DEPRESSION [None]
  - DIARRHOEA [None]
  - DISTURBANCE IN ATTENTION [None]
  - ECONOMIC PROBLEM [None]
  - EMOTIONAL DISORDER [None]
  - GAIT DISTURBANCE [None]
  - GLUCOSE TOLERANCE IMPAIRED [None]
  - HYPERINSULINAEMIA [None]
  - HYPONATRAEMIA [None]
  - INJURY [None]
  - INTERNATIONAL NORMALISED RATIO INCREASED [None]
  - INTRACARDIAC THROMBUS [None]
  - IRRITABILITY [None]
  - ISCHAEMIC CARDIOMYOPATHY [None]
  - NAUSEA [None]
  - PAIN [None]
  - PARAESTHESIA [None]
  - PROTHROMBIN TIME PROLONGED [None]
  - RENAL DISORDER [None]
  - SLEEP APNOEA SYNDROME [None]
  - SOCIAL AVOIDANT BEHAVIOUR [None]
  - SURGERY [None]
  - THERAPEUTIC AGENT TOXICITY [None]
  - TRAUMATIC ARTHRITIS [None]
  - VISUAL IMPAIRMENT [None]
  - VOMITING [None]
  - WEIGHT DECREASED [None]
  - WEIGHT INCREASED [None]
